FAERS Safety Report 5582868-9 (Version None)
Quarter: 2008Q1

REPORT INFORMATION
  Report Type: 
  Country: None (occurrence: None)
  Receive Date: 20080107
  Receipt Date: 20071227
  Transmission Date: 20080703
  Serious: Yes (Other)
  Sender: FDA-Public Use
  Company Number: US-ROCHE-521745

PATIENT
  Age: 43 Year
  Sex: Female

DRUGS (4)
  1. PEGASYS [Suspect]
     Indication: HEPATITIS C
     Dosage: REPORTED TO BE IN WEEK 31 OF THERAPY. DOSE REPORTED AS 180 MCG PER WEEK.
     Route: 065
     Dates: start: 20070525
  2. COPEGUS [Suspect]
     Indication: HEPATITIS C
     Dosage: REPORTED TO BE IN WEEK 31 OF THERAPY.
     Route: 065
     Dates: start: 20070525
  3. MULTI-VITAMIN [Concomitant]
  4. FISH OIL [Concomitant]

REACTIONS (18)
  - ABDOMINAL DISTENSION [None]
  - BURNING SENSATION [None]
  - CARDIOVASCULAR DISORDER [None]
  - CHEST PAIN [None]
  - DRY MOUTH [None]
  - DYSGEUSIA [None]
  - DYSPNOEA [None]
  - FATIGUE [None]
  - HAEMOGLOBIN DECREASED [None]
  - MYALGIA [None]
  - NAUSEA [None]
  - NEOPLASM [None]
  - OEDEMA PERIPHERAL [None]
  - PARAESTHESIA ORAL [None]
  - PARANOIA [None]
  - RASH [None]
  - RED BLOOD CELL COUNT DECREASED [None]
  - WHITE BLOOD CELL COUNT DECREASED [None]
